FAERS Safety Report 4597278-0 (Version None)
Quarter: 2005Q1

REPORT INFORMATION
  Report Type: 
  Country: None (occurrence: None)
  Receive Date: 20050225
  Receipt Date: 20050225
  Transmission Date: 20050727
  Serious: No
  Sender: FDA-Public Use
  Company Number: None

PATIENT
  Sex: Female

DRUGS (3)
  1. BUPIVACAINE [Suspect]
     Dosage: 12MG  ONCE  INTRATHECAL
     Route: 037
     Dates: start: 20050224, end: 20050224
  2. FENTANYL [Concomitant]
  3. DURAMORPH PF [Concomitant]

REACTIONS (2)
  - ANAESTHETIC COMPLICATION [None]
  - DRUG EFFECT DECREASED [None]
